FAERS Safety Report 24788440 (Version 2)
Quarter: 2025Q1

REPORT INFORMATION
  Report Type: Spontaneous
  Country: US (occurrence: US)
  Receive Date: 20241230
  Receipt Date: 20250107
  Transmission Date: 20250409
  Serious: No
  Sender: MYLAN
  Company Number: US-MYLANLABS-2024M1115245

PATIENT
  Age: 75 Year
  Sex: Female

DRUGS (1)
  1. WIXELA INHUB [Suspect]
     Active Substance: FLUTICASONE PROPIONATE\SALMETEROL XINAFOATE
     Indication: Chronic obstructive pulmonary disease
     Dosage: 250/50 MICROGRAM, BID (1 PUFF TWICE A DAY, ONCE IN THE MORNING + ONCE AT NIGHT)
     Route: 055

REACTIONS (2)
  - Device malfunction [None]
  - Product quality issue [None]

NARRATIVE: CASE EVENT DATE: 20241216
